FAERS Safety Report 11910024 (Version 1)
Quarter: 2016Q1

REPORT INFORMATION
  Report Type: Spontaneous
  Country: US (occurrence: None)
  Receive Date: 20160111
  Receipt Date: 20160111
  Transmission Date: 20160526
  Serious: No
  Sender: FDA-Public Use
  Company Number: None

PATIENT
  Age: 47 Year
  Sex: Female

DRUGS (1)
  1. HUMIRA [Suspect]
     Active Substance: ADALIMUMAB
     Dosage: 40MG  EVERY 2 WEEKS SQ
     Route: 058
     Dates: start: 20151022

REACTIONS (4)
  - Vulvovaginal mycotic infection [None]
  - Oral herpes [None]
  - Pyrexia [None]
  - Pruritus generalised [None]

NARRATIVE: CASE EVENT DATE: 20151101
